FAERS Safety Report 8249255-6 (Version None)
Quarter: 2012Q1

REPORT INFORMATION
  Report Type: 
  Country: None (occurrence: None)
  Receive Date: 20120327
  Receipt Date: 20120314
  Transmission Date: 20120608
  Serious: Yes (Death)
  Sender: FDA-Public Use
  Company Number: 2012MA003396

PATIENT
  Sex: Male

DRUGS (2)
  1. DIGOXIN [Suspect]
     Indication: CARDIAC FAILURE
     Dosage: 250 MCG; PO
     Route: 048
     Dates: start: 20001114, end: 20080116
  2. DIGOXIN [Suspect]
     Indication: ARRHYTHMIA
     Dosage: 250 MCG; PO
     Route: 048
     Dates: start: 20001114, end: 20080116

REACTIONS (3)
  - PAIN [None]
  - INJURY [None]
  - EMOTIONAL DISTRESS [None]
